FAERS Safety Report 25441862 (Version 3)
Quarter: 2025Q3

REPORT INFORMATION
  Report Type: Spontaneous
  Country: US (occurrence: US)
  Receive Date: 20250616
  Receipt Date: 20250725
  Transmission Date: 20251021
  Serious: Yes (Other)
  Sender: INCYTE
  Company Number: US-INCYTE CORPORATION-2025IN006402

PATIENT
  Age: 78 Year
  Weight: 81.92 kg

DRUGS (2)
  1. JAKAFI [Suspect]
     Active Substance: RUXOLITINIB
     Indication: Polycythaemia vera
     Dosage: 5 MILLIGRAM, BID
  2. ASPIRIN [Suspect]
     Active Substance: ASPIRIN
     Route: 065

REACTIONS (5)
  - Coronary artery disease [Unknown]
  - Asthma [Unknown]
  - Dehydration [Unknown]
  - Pain [Unknown]
  - Contusion [Unknown]
